FAERS Safety Report 6039997-5 (Version None)
Quarter: 2009Q1

REPORT INFORMATION
  Report Type: 
  Country: None (occurrence: None)
  Receive Date: 20090116
  Receipt Date: 20071109
  Transmission Date: 20090719
  Serious: No
  Sender: FDA-Public Use
  Company Number: US-BRISTOL-MYERS SQUIBB COMPANY-13977947

PATIENT
  Age: 57 Year
  Sex: Female
  Weight: 68 kg

DRUGS (9)
  1. ABILIFY [Suspect]
     Indication: BIPOLAR DISORDER
     Dosage: INITIALLY 5 MG THEN INCREASED TO 15 MG.
     Route: 048
  2. EFFEXOR [Concomitant]
  3. AMBIEN [Concomitant]
  4. LASIX [Concomitant]
  5. VALIUM [Concomitant]
  6. REQUIP [Concomitant]
  7. NEXIUM [Concomitant]
  8. COZAAR [Concomitant]
  9. DEPAKOTE [Concomitant]

REACTIONS (2)
  - EUPHORIC MOOD [None]
  - FEELING ABNORMAL [None]
